FAERS Safety Report 7617165 (Version 2)
Quarter: 2020Q3

REPORT INFORMATION
  Report Type: Spontaneous
  Country: FR (occurrence: None)
  Receive Date: 20100920
  Receipt Date: 20110518
  Transmission Date: 20201105
  Serious: Yes (Hospitalization)
  Sender: FDA-Public Use
  Company Number: 2010SP048840

PATIENT
  Age: 29 Year
  Sex: Female

DRUGS (7)
  1. ERYTHROMYCIN. [Suspect]
     Active Substance: ERYTHROMYCIN
     Indication: INFECTION PROPHYLAXIS
     Dosage: 3 GM, QD
     Dates: start: 20100522
  2. PHENYLEPHRINE HYDROCHLORIDE. [Suspect]
     Active Substance: PHENYLEPHRINE HYDROCHLORIDE
     Indication: PRODUCT USED FOR UNKNOWN INDICATION
     Dates: start: 20100524
  3. CELESTONE [Suspect]
     Active Substance: BETAMETHASONE
     Indication: PRODUCT USED FOR UNKNOWN INDICATION
     Dates: start: 20100523
  4. ATOSIBAN [Suspect]
     Active Substance: ATOSIBAN
     Indication: TOCOLYSIS
     Dates: start: 20100524
  5. ADALAT [Suspect]
     Active Substance: NIFEDIPINE
     Indication: TOCOLYSIS
     Dosage: 1 DF, QD, PO
     Route: 048
     Dates: start: 20100524
  6. EPHEDRINE. [Suspect]
     Active Substance: EPHEDRINE
     Indication: PRODUCT USED FOR UNKNOWN INDICATION
     Dates: start: 20100524
  7. VOLUVEN [Suspect]
     Active Substance: HYDROXYETHYL STARCH 130/0.4
     Indication: PRODUCT USED FOR UNKNOWN INDICATION
     Dates: start: 20100524

REACTIONS (18)
  - Pleural effusion [None]
  - Troponin increased [None]
  - Brain natriuretic peptide increased [None]
  - Cardiomyopathy [None]
  - Blood pressure decreased [None]
  - Tachycardia [None]
  - Dyspnoea [None]
  - Oxygen saturation decreased [None]
  - White blood cell count increased [None]
  - Streptococcus test positive [None]
  - Stillbirth [None]
  - Premature labour [None]
  - Maternal exposure during pregnancy [None]
  - Escherichia test positive [None]
  - Chest pain [None]
  - Fluid overload [None]
  - Sepsis [None]
  - Pathogen resistance [None]

NARRATIVE: CASE EVENT DATE: 20100524
